FAERS Safety Report 23231815 (Version 3)
Quarter: 2024Q1

REPORT INFORMATION
  Report Type: Spontaneous
  Country: AT (occurrence: AT)
  Receive Date: 20231127
  Receipt Date: 20240302
  Transmission Date: 20240410
  Serious: Yes (Other)
  Sender: FDA-Public Use
  Company Number: AT-JNJFOC-20231157637

PATIENT
  Age: 72 Year
  Sex: Female

DRUGS (2)
  1. TECVAYLI [Suspect]
     Active Substance: TECLISTAMAB-CQYV
     Indication: Plasma cell myeloma
     Dosage: STANDARD DOSE
     Route: 065
     Dates: start: 20221108, end: 20230505
  2. TECVAYLI [Suspect]
     Active Substance: TECLISTAMAB-CQYV
     Dosage: EVERY 2 TO 3 WEEKS
     Route: 065
     Dates: start: 20230519, end: 20230922

REACTIONS (2)
  - Progressive multifocal leukoencephalopathy [Unknown]
  - Off label use [Unknown]

NARRATIVE: CASE EVENT DATE: 20230519
